FAERS Safety Report 16460776 (Version 1)
Quarter: 2019Q2

REPORT INFORMATION
  Report Type: Spontaneous
  Country: CN (occurrence: CN)
  Receive Date: 20190620
  Receipt Date: 20190620
  Transmission Date: 20190711
  Serious: Yes (Other)
  Sender: FDA-Public Use
  Company Number: CN-ROCHE-2339759

PATIENT

DRUGS (3)
  1. OLAPARIB. [Concomitant]
     Active Substance: OLAPARIB
     Indication: COLON CANCER
     Route: 065
     Dates: start: 20170101
  2. BEVACIZUMAB. [Suspect]
     Active Substance: BEVACIZUMAB
     Indication: COLON CANCER
     Route: 065
     Dates: start: 201702, end: 2017
  3. CAPECITABINE. [Suspect]
     Active Substance: CAPECITABINE
     Indication: COLON CANCER
     Route: 048
     Dates: start: 201702, end: 2017

REACTIONS (2)
  - Enterovesical fistula [Unknown]
  - BRCA1 gene mutation [Unknown]
